FAERS Safety Report 16260128 (Version 1)
Quarter: 2019Q2

REPORT INFORMATION
  Report Type: Spontaneous
  Country: US (occurrence: US)
  Receive Date: 20190430
  Receipt Date: 20190430
  Transmission Date: 20190711
  Serious: Yes (Hospitalization)
  Sender: FDA-Public Use
  Company Number: None

PATIENT

DRUGS (11)
  1. VITAMIN D3 [Concomitant]
     Active Substance: CHOLECALCIFEROL
  2. CIALIS [Concomitant]
     Active Substance: TADALAFIL
  3. FABRAZYME [Suspect]
     Active Substance: AGALSIDASE BETA
     Indication: FABRY^S DISEASE
     Dosage: ?          OTHER FREQUENCY:EVERY 2 WEEKS;?
     Route: 042
     Dates: start: 20180130
  4. ZANTAC [Concomitant]
     Active Substance: RANITIDINE HYDROCHLORIDE
  5. ZOCOR [Concomitant]
     Active Substance: SIMVASTATIN
  6. FOLIC ACID. [Concomitant]
     Active Substance: FOLIC ACID
  7. CANDESARTAN. [Concomitant]
     Active Substance: CANDESARTAN
  8. LOSARTAN. [Concomitant]
     Active Substance: LOSARTAN
  9. RANITIDINE. [Concomitant]
     Active Substance: RANITIDINE
  10. SIMVASTATIN. [Concomitant]
     Active Substance: SIMVASTATIN
  11. ASPIRIN. [Concomitant]
     Active Substance: ASPIRIN

REACTIONS (1)
  - Hospitalisation [None]
